FAERS Safety Report 6091742-3 (Version None)
Quarter: 2009Q1

REPORT INFORMATION
  Report Type: 
  Country: None (occurrence: None)
  Receive Date: 20090225
  Receipt Date: 20080512
  Transmission Date: 20090719
  Serious: No
  Sender: FDA-Public Use
  Company Number: A0727459A

PATIENT
  Age: 46 Year
  Sex: Male

DRUGS (2)
  1. VALTREX [Suspect]
     Dosage: 1G PER DAY
     Route: 048
     Dates: start: 19980101
  2. MULTI-VITAMIN [Concomitant]

REACTIONS (2)
  - BLOOD CHOLESTEROL INCREASED [None]
  - RENAL FUNCTION TEST ABNORMAL [None]
